FAERS Safety Report 14985018 (Version 3)
Quarter: 2019Q3

REPORT INFORMATION
  Report Type: Spontaneous
  Country: US (occurrence: US)
  Receive Date: 20180607
  Receipt Date: 20190910
  Transmission Date: 20191004
  Serious: Yes (Other)
  Sender: FDA-Public Use
  Company Number: US-ELI_LILLY_AND_COMPANY-US201806000472

PATIENT
  Sex: Male

DRUGS (3)
  1. VIAGRA [Suspect]
     Active Substance: SILDENAFIL CITRATE
     Indication: ERECTILE DYSFUNCTION
     Dosage: 50 MG, OTHER (2-3 TIMES PER WEEK)
     Route: 065
     Dates: start: 20070724, end: 2009
  2. CIALIS [Suspect]
     Active Substance: TADALAFIL
     Indication: ERECTILE DYSFUNCTION
     Dosage: 5 MG, OTHER (2-3 TIMES PER WEEK)
     Route: 065
     Dates: start: 20130513, end: 20140711
  3. LEVITRA [Concomitant]
     Active Substance: VARDENAFIL HYDROCHLORIDE
     Indication: ERECTILE DYSFUNCTION
     Dosage: UNK, OTHER (2 TO 3 TIMES A WEEK)

REACTIONS (6)
  - Melanocytic naevus [Unknown]
  - Ephelides [Unknown]
  - Anxiety [Unknown]
  - Actinic elastosis [Unknown]
  - Blepharitis [Unknown]
  - Malignant melanoma [Unknown]

NARRATIVE: CASE EVENT DATE: 20150805
